FAERS Safety Report 24128262 (Version 1)
Quarter: 2024Q3

REPORT INFORMATION
  Report Type: Report from Study
  Country: US (occurrence: None)
  Receive Date: 20240723
  Receipt Date: 20240723
  Transmission Date: 20241017
  Serious: Yes (Hospitalization)
  Sender: ASTRAZENECA
  Company Number: 2021A488680

PATIENT
  Sex: Male

DRUGS (13)
  1. FASENRA [Suspect]
     Active Substance: BENRALIZUMAB
     Indication: Asthma
     Dosage: 30MG/ML EVERY FOUR WEEKS
     Route: 058
  2. OMEPRAZOLE [Suspect]
     Active Substance: OMEPRAZOLE
     Route: 048
  3. ADVAIR DISKU [Concomitant]
     Dosage: AER
  4. BUPROPION HYDROCHLORIDE [Concomitant]
     Active Substance: BUPROPION HYDROCHLORIDE
  5. CABERGOLINE [Concomitant]
     Active Substance: CABERGOLINE
  6. DIVALPROEX SODIUM [Concomitant]
     Active Substance: DIVALPROEX SODIUM
  7. MELOXICAM [Concomitant]
     Active Substance: MELOXICAM
  8. PANTOPRAZOLE [Concomitant]
     Active Substance: PANTOPRAZOLE
  9. PROPRANOLOL [Concomitant]
     Active Substance: PROPRANOLOL HYDROCHLORIDE
  10. RISPERIDONE [Concomitant]
     Active Substance: RISPERIDONE
  11. TESTOSTERONE [Concomitant]
     Active Substance: TESTOSTERONE
  12. TIZANIDINE [Concomitant]
     Active Substance: TIZANIDINE
  13. VENTOLIN HFA [Concomitant]
     Active Substance: ALBUTEROL SULFATE
     Dosage: AER

REACTIONS (1)
  - Hypertension [Unknown]
